FAERS Safety Report 18851719 (Version 1)
Quarter: 2021Q1

REPORT INFORMATION
  Report Type: Spontaneous
  Country: US (occurrence: US)
  Receive Date: 20210205
  Receipt Date: 20210205
  Transmission Date: 20210420
  Serious: No
  Sender: FDA-Public Use
  Company Number: None

PATIENT
  Age: 98 Year
  Sex: Male
  Weight: 54 kg

DRUGS (1)
  1. BAMLANIVIMAB. [Suspect]
     Active Substance: BAMLANIVIMAB
     Indication: COVID-19
     Dosage: ?          OTHER FREQUENCY:ONCE;?
     Route: 041
     Dates: start: 20210204, end: 20210204

REACTIONS (5)
  - Tremor [None]
  - Sputum abnormal [None]
  - Chest pain [None]
  - Cough [None]
  - Body temperature increased [None]

NARRATIVE: CASE EVENT DATE: 20210204
